FAERS Safety Report 9500918 (Version 1)
Quarter: 2013Q1

REPORT INFORMATION
  Report Type: Spontaneous
  Country: US (occurrence: None)
  Receive Date: 20130107
  Receipt Date: 20130107
  Transmission Date: 20140127
  Serious: No
  Sender: FDA-Public Use
  Company Number: PHEH2012US019422

PATIENT
  Age: 57 Year
  Sex: Female

DRUGS (1)
  1. GILENYA (FTY) CAPSULE, 0.5MG [Suspect]
     Indication: MULTIPLE SCLEROSIS
     Route: 048
     Dates: start: 20120522, end: 20121031

REACTIONS (4)
  - Fatigue [None]
  - Vitamin B6 increased [None]
  - Vitamin D decreased [None]
  - Asthenia [None]
